FAERS Safety Report 14172466 (Version 1)
Quarter: 2017Q4

REPORT INFORMATION
  Report Type: Spontaneous
  Country: US (occurrence: US)
  Receive Date: 20171108
  Receipt Date: 20171108
  Transmission Date: 20180321
  Serious: Yes (Other)
  Sender: FDA-Public Use
  Company Number: None

PATIENT
  Age: 50 Year
  Sex: Male
  Weight: 90.9 kg

DRUGS (2)
  1. FENTANYL. [Concomitant]
     Active Substance: FENTANYL
  2. OXYCODONE [Suspect]
     Active Substance: OXYCODONE
     Indication: BRACHIAL PLEXUS INJURY
     Route: 048
     Dates: start: 20140723, end: 20140819

REACTIONS (5)
  - Anger [None]
  - Product substitution issue [None]
  - Agitation [None]
  - Suicidal ideation [None]
  - Nausea [None]

NARRATIVE: CASE EVENT DATE: 20140804
